FAERS Safety Report 19170700 (Version 1)
Quarter: 2021Q2

REPORT INFORMATION
  Report Type: Spontaneous
  Country: GB (occurrence: GB)
  Receive Date: 20210422
  Receipt Date: 20210422
  Transmission Date: 20210717
  Serious: Yes (Other)
  Sender: FDA-Public Use
  Company Number: GB-TAKEDA-2021TJP018112

PATIENT
  Age: 49 Year
  Sex: Female
  Weight: 64 kg

DRUGS (3)
  1. LANSOPRAZOLE. [Suspect]
     Active Substance: LANSOPRAZOLE
     Indication: DYSPEPSIA
     Dosage: 15 MILLIGRAM, FOR TWO MONTHS
     Route: 048
     Dates: start: 20141125, end: 20150620
  2. LANSOPRAZOLE. [Suspect]
     Active Substance: LANSOPRAZOLE
     Indication: DYSPEPSIA
     Dosage: 30 MILLIGRAM, MONTHLY
     Route: 048
     Dates: start: 20141125, end: 20150620
  3. LANSOPRAZOLE. [Suspect]
     Active Substance: LANSOPRAZOLE
     Dosage: 60 MILLIGRAM, FOR 5 MONTHS
     Route: 048
     Dates: start: 20141125, end: 20150620

REACTIONS (6)
  - Regurgitation [Recovered/Resolved]
  - Sleep disorder [Unknown]
  - Dry throat [Recovered/Resolved with Sequelae]
  - Foreign body in throat [Recovered/Resolved with Sequelae]
  - Oesophageal injury [Not Recovered/Not Resolved]
  - Dry mouth [Unknown]

NARRATIVE: CASE EVENT DATE: 2015
